FAERS Safety Report 5980162-5 (Version None)
Quarter: 2008Q4

REPORT INFORMATION
  Report Type: 
  Country: None (occurrence: None)
  Receive Date: 20081205
  Receipt Date: 20081128
  Transmission Date: 20090506
  Serious: Yes (Other)
  Sender: FDA-Public Use
  Company Number: DE-AMGEN-US321301

PATIENT
  Sex: Male
  Weight: 85 kg

DRUGS (5)
  1. ENBREL [Suspect]
     Indication: SPONDYLITIS
     Route: 058
     Dates: start: 20080901, end: 20081023
  2. REMICADE [Suspect]
     Indication: SPONDYLITIS
     Dosage: 400 MG
     Route: 042
     Dates: start: 20080723, end: 20080807
  3. NORVASC [Concomitant]
     Route: 048
     Dates: start: 20070101
  4. CELEBREX [Concomitant]
     Route: 048
     Dates: start: 20080101
  5. DECORTIN-H [Concomitant]
     Route: 048
     Dates: start: 20080101

REACTIONS (5)
  - CHRONIC SINUSITIS [None]
  - DEPRESSION [None]
  - PERSONALITY CHANGE [None]
  - RESTLESSNESS [None]
  - TREMOR [None]
